FAERS Safety Report 8259918-4 (Version None)
Quarter: 2012Q2

REPORT INFORMATION
  Report Type: 
  Country: None (occurrence: None)
  Receive Date: 20120402
  Receipt Date: 20120322
  Transmission Date: 20120825
  Serious: Yes (Other)
  Sender: FDA-Public Use
  Company Number: PI-06937

PATIENT
  Sex: Female

DRUGS (1)
  1. CHLORAPREP [Suspect]
     Indication: PREOPERATIVE CARE
     Dosage: , ONCE, TOPICAL
     Route: 061
     Dates: start: 20120322

REACTIONS (2)
  - ACCIDENTAL EXPOSURE [None]
  - CHEMICAL BURNS OF EYE [None]
